FAERS Safety Report 14487641 (Version 2)
Quarter: 2018Q2

REPORT INFORMATION
  Report Type: Spontaneous
  Country: IT (occurrence: IT)
  Receive Date: 20180205
  Receipt Date: 20180416
  Transmission Date: 20180711
  Serious: Yes (Life-Threatening)
  Sender: FDA-Public Use
  Company Number: IT-JNJFOC-20180202968

PATIENT
  Age: 68 Year
  Sex: Female

DRUGS (1)
  1. YONDELIS [Suspect]
     Active Substance: TRABECTEDIN
     Indication: OVARIAN CANCER
     Route: 042
     Dates: start: 20171129

REACTIONS (5)
  - Asthenia [Unknown]
  - Rhabdomyolysis [Unknown]
  - Oliguria [Unknown]
  - Pancytopenia [Unknown]
  - Myalgia [Unknown]

NARRATIVE: CASE EVENT DATE: 20171229
